FAERS Safety Report 8914951 (Version 1)
Quarter: 2012Q4

REPORT INFORMATION
  Report Type: 
  Country: DE (occurrence: NO)
  Receive Date: 20121116
  Receipt Date: 20121116
  Transmission Date: 20130627
  Serious: Yes (Death)
  Sender: FDA-Public Use
  Company Number: NO-BRISTOL-MYERS SQUIBB COMPANY-17102971

PATIENT
  Age: 82 Year
  Sex: Female

DRUGS (8)
  1. METFORMIN HCL TABS [Suspect]
     Indication: DIABETES MELLITUS
     Route: 048
  2. PHENYTOIN [Concomitant]
     Route: 048
  3. BURINEX [Concomitant]
     Route: 048
  4. SORBANGIL [Concomitant]
     Route: 048
  5. SIMVASTATIN [Concomitant]
     Route: 048
  6. ZYLORIC [Concomitant]
     Route: 048
  7. LEVAXIN [Concomitant]
     Dosage: 1df=100mg/d,200mg on mondays
     Route: 048
  8. RENITEC COMP [Concomitant]
     Dosage: 1df=20mg/12.5mg
     Route: 048

REACTIONS (3)
  - Lactic acidosis [Fatal]
  - Toxicity to various agents [Fatal]
  - Renal failure [Fatal]
